FAERS Safety Report 5258924-1 (Version None)
Quarter: 2007Q1

REPORT INFORMATION
  Report Type: 
  Country: None (occurrence: None)
  Receive Date: 20061117
  Receipt Date: 20060911
  Transmission Date: 20070707
  Serious: Yes (Hospitalization)
  Sender: FDA-Public Use
  Company Number: US-JNJFOC-20060803288

PATIENT
  Age: 66 Year
  Sex: Male

DRUGS (1)
  1. LEVAQUIN [Suspect]
     Indication: DIABETIC FOOT INFECTION
     Dosage: 500 MG, IN  1 DAY, ORAL
     Route: 048
     Dates: start: 20060719

REACTIONS (4)
  - LIVER FUNCTION TEST ABNORMAL [None]
  - NAUSEA [None]
  - URTICARIA [None]
  - VOMITING [None]
